FAERS Safety Report 26102806 (Version 1)
Quarter: 2025Q4

REPORT INFORMATION
  Report Type: Spontaneous
  Country: CA (occurrence: CA)
  Receive Date: 20251128
  Receipt Date: 20251128
  Transmission Date: 20260117
  Serious: Yes (Other)
  Sender: MERCK SHARP & DOHME LLC
  Company Number: CA-01054554290-2012SP014583

PATIENT
  Age: 70 Year
  Sex: Male

DRUGS (3)
  1. ROCURONIUM BROMIDE [Suspect]
     Active Substance: ROCURONIUM BROMIDE
     Indication: Induction of anaesthesia
     Route: 042
  2. SUFENTANIL [Concomitant]
     Active Substance: SUFENTANIL
     Dosage: DOSE DESCRIPTION : 15 ?G, UNK
     Route: 042
  3. PROPOFOL [Concomitant]
     Active Substance: PROPOFOL
     Dosage: DOSE DESCRIPTION : 200 MG, UNK
     Route: 042

REACTIONS (2)
  - Hypertensive crisis [Unknown]
  - Tachycardia [Unknown]
